FAERS Safety Report 8977509 (Version 2)
Quarter: 2013Q1

REPORT INFORMATION
  Report Type: Report from Study
  Country: JP (occurrence: JP)
  Receive Date: 20121219
  Receipt Date: 20130122
  Transmission Date: 20140127
  Serious: Yes (Death)
  Sender: FDA-Public Use
  Company Number: JP-PFIZER INC-2012319865

PATIENT
  Age: 65 Year
  Sex: Male

DRUGS (3)
  1. ARGATROBAN [Suspect]
     Dosage: UNK
     Route: 041
     Dates: start: 20120630, end: 20120703
  2. RADICUT [Concomitant]
     Indication: THROMBOTIC CEREBRAL INFARCTION
     Dosage: 30 MG, 2X/DAY
     Route: 041
     Dates: start: 20120630, end: 20120701
  3. CLOPIDOGREL SULFATE [Concomitant]
     Indication: THROMBOTIC CEREBRAL INFARCTION
     Dosage: UNK
     Route: 048
     Dates: start: 20120630

REACTIONS (1)
  - Cerebral infarction [Fatal]
